FAERS Safety Report 15204295 (Version 5)
Quarter: 2020Q2

REPORT INFORMATION
  Report Type: Report from Study
  Country: CA (occurrence: CA)
  Receive Date: 20180726
  Receipt Date: 20200521
  Transmission Date: 20200713
  Serious: Yes (Hospitalization, Other)
  Sender: FDA-Public Use
  Company Number: CA-BRISTOL-MYERS SQUIBB COMPANY-BMS-2018-024566

PATIENT
  Age: 76 Year
  Sex: Male

DRUGS (1)
  1. ABATACEPT [Suspect]
     Active Substance: ABATACEPT
     Indication: RHEUMATOID ARTHRITIS
     Dosage: 750 MILLIGRAM, Q4WK
     Route: 042
     Dates: start: 20080505

REACTIONS (11)
  - Face oedema [Recovering/Resolving]
  - Throat irritation [Recovering/Resolving]
  - Blood pressure fluctuation [Unknown]
  - Blood pressure systolic increased [Not Recovered/Not Resolved]
  - Dizziness [Unknown]
  - Salivary gland disorder [Unknown]
  - Heart rate irregular [Unknown]
  - Pulpitis dental [Recovered/Resolved]
  - Cardiac disorder [Unknown]
  - Inflammation [Unknown]
  - Fatigue [Unknown]

NARRATIVE: CASE EVENT DATE: 20180716
